FAERS Safety Report 6579703-9 (Version None)
Quarter: 2010Q1

REPORT INFORMATION
  Report Type: 
  Country: None (occurrence: None)
  Receive Date: 20100212
  Receipt Date: 20100205
  Transmission Date: 20100710
  Serious: Yes (Life-Threatening, Hospitalization)
  Sender: FDA-Public Use
  Company Number: CN-ROCHE-683912

PATIENT
  Sex: Female
  Weight: 68 kg

DRUGS (2)
  1. TOCILIZUMAB [Suspect]
     Indication: RHEUMATOID ARTHRITIS
     Dosage: DOSES BLINDED.
     Route: 042
     Dates: start: 20061110, end: 20100205
  2. ACETYLSALICYLIC ACID [Concomitant]
     Dates: start: 20040101

REACTIONS (2)
  - CEREBRAL INFARCTION [None]
  - DEMYELINATION [None]
